FAERS Safety Report 8216765-7 (Version None)
Quarter: 2012Q1

REPORT INFORMATION
  Report Type: 
  Country: None (occurrence: None)
  Receive Date: 20120316
  Receipt Date: 20120308
  Transmission Date: 20120608
  Serious: Yes (Disabling, Other)
  Sender: FDA-Public Use
  Company Number: US-ROCHE-793898

PATIENT
  Sex: Female
  Weight: 59.928 kg

DRUGS (3)
  1. ACCUTANE [Suspect]
     Indication: ACNE
  2. ACCUTANE [Suspect]
     Dates: start: 19900101, end: 19960101
  3. ACCUTANE [Suspect]

REACTIONS (6)
  - IRRITABLE BOWEL SYNDROME [None]
  - INTESTINAL HAEMORRHAGE [None]
  - INTESTINAL OBSTRUCTION [None]
  - DEPRESSION [None]
  - INFLAMMATORY BOWEL DISEASE [None]
  - CROHN'S DISEASE [None]
